FAERS Safety Report 6166206-9 (Version None)
Quarter: 2009Q2

REPORT INFORMATION
  Report Type: 
  Country: None (occurrence: None)
  Receive Date: 20090422
  Receipt Date: 20090422
  Transmission Date: 20091009
  Serious: No
  Sender: FDA-Public Use
  Company Number: None

PATIENT
  Sex: Female
  Weight: 83.1 kg

DRUGS (1)
  1. CLINIMIX 4.25/5 SULFITE FREE IN DEXTROSE 5% [Suspect]
     Indication: NUTRITIONAL SUPPORT
     Dosage: 85 ML/HR IV
     Route: 042
     Dates: start: 20090327, end: 20090408

REACTIONS (1)
  - MEDICATION ERROR [None]
